FAERS Safety Report 20517135 (Version 1)
Quarter: 2022Q1

REPORT INFORMATION
  Report Type: Report from Study
  Country: DE (occurrence: DE)
  Receive Date: 20220225
  Receipt Date: 20220225
  Transmission Date: 20220424
  Serious: Yes (Death, Hospitalization, Other)
  Sender: FDA-Public Use
  Company Number: DE-ALS-000535

PATIENT
  Age: 80 Year
  Sex: Female

DRUGS (1)
  1. METFORMIN [Suspect]
     Active Substance: METFORMIN HYDROCHLORIDE
     Indication: Type 2 diabetes mellitus
     Route: 065

REACTIONS (13)
  - General physical health deterioration [Unknown]
  - Somnolence [Unknown]
  - Hypoglycaemia [Unknown]
  - Lactic acidosis [Unknown]
  - Hypothermia [Unknown]
  - Hypotension [Unknown]
  - Renal failure [Unknown]
  - Respiratory failure [Unknown]
  - Endotracheal intubation [Unknown]
  - Mechanical ventilation [Unknown]
  - Polyuria [Unknown]
  - Cardiac death [Fatal]
  - Drug ineffective [Unknown]
